FAERS Safety Report 4399834-1 (Version None)
Quarter: 2004Q3

REPORT INFORMATION
  Report Type: 
  Country: None (occurrence: None)
  Receive Date: 20040714
  Receipt Date: 20040623
  Transmission Date: 20050211
  Serious: Yes (Hospitalization)
  Sender: FDA-Public Use
  Company Number: FR_040604346

PATIENT
  Age: 53 Year
  Sex: Female

DRUGS (2)
  1. GEMZAR [Suspect]
     Indication: BREAST CANCER
     Dosage: 1000 MG/M2/1 OTHER
     Route: 050
     Dates: start: 20040623
  2. OXALIPLATIN [Concomitant]

REACTIONS (2)
  - ACCIDENTAL OVERDOSE [None]
  - MEDICATION ERROR [None]
